FAERS Safety Report 4693784-9 (Version None)
Quarter: 2005Q2

REPORT INFORMATION
  Report Type: 
  Country: None (occurrence: None)
  Receive Date: 20050616
  Receipt Date: 20050602
  Transmission Date: 20051028
  Serious: Yes (Hospitalization, Disabling)
  Sender: FDA-Public Use
  Company Number: 200504056

PATIENT
  Age: 24 Month
  Sex: Female
  Weight: 10 kg

DRUGS (6)
  1. BOTOX [Suspect]
     Indication: TORTICOLLIS
     Dosage: 25 UNITS PRN IM
     Route: 030
     Dates: start: 20040928, end: 20040928
  2. BOTOX [Suspect]
     Indication: TORTICOLLIS
     Dosage: 40 UNITS PRN IM
     Route: 030
     Dates: start: 20050111, end: 20050111
  3. BOTOX [Suspect]
     Indication: TORTICOLLIS
     Dosage: 55 UNITS PRN IM
     Route: 030
     Dates: start: 20050419, end: 20050419
  4. HORIZON [Concomitant]
  5. MYONAL [Concomitant]
  6. DANTRIUM [Concomitant]

REACTIONS (4)
  - ASPIRATION [None]
  - HYPOXIC ENCEPHALOPATHY [None]
  - INJURY ASPHYXIATION [None]
  - WHEEZING [None]
